FAERS Safety Report 15073308 (Version 1)
Quarter: 2018Q2

REPORT INFORMATION
  Report Type: Spontaneous
  Country: CA (occurrence: CA)
  Receive Date: 20180627
  Receipt Date: 20180627
  Transmission Date: 20180711
  Serious: Yes (Hospitalization)
  Sender: FDA-Public Use
  Company Number: CA-ROCHE-2145858

PATIENT
  Age: 15 Year
  Sex: Female

DRUGS (2)
  1. ASCORBIC ACID/CALCIUM PANTOTHENATE OR DEXPANTHENOL/ERGOCALCIFEROL/NICO [Concomitant]
  2. SOMATROPIN. [Suspect]
     Active Substance: SOMATROPIN
     Indication: GROWTH RETARDATION
     Route: 058

REACTIONS (3)
  - Abdominal pain [Unknown]
  - Appendix disorder [Unknown]
  - Hypersensitivity [Unknown]
